FAERS Safety Report 8879202 (Version 1)
Quarter: 2012Q4

REPORT INFORMATION
  Report Type: Spontaneous
  Country: CA (occurrence: None)
  Receive Date: 20121026
  Receipt Date: 20121026
  Transmission Date: 20130627
  Serious: Yes (Death)
  Sender: FDA-Public Use
  Company Number: B0839881A

PATIENT
  Age: 65 Year
  Sex: Male

DRUGS (6)
  1. LAMIVUDINE-HBV [Suspect]
     Indication: PROPHYLAXIS
  2. DOXORUBICIN [Concomitant]
  3. PREDNISOLONE [Concomitant]
  4. VINCRISTINE [Concomitant]
  5. CYCLOPHOSPHAMIDE [Concomitant]
  6. RITUXIMAB [Concomitant]

REACTIONS (2)
  - Hepatitis B [None]
  - Hepatic failure [None]
